FAERS Safety Report 7398218-1 (Version None)
Quarter: 2011Q2

REPORT INFORMATION
  Report Type: 
  Country: None (occurrence: None)
  Receive Date: 20110406
  Receipt Date: 20110328
  Transmission Date: 20111010
  Serious: Yes (Hospitalization, Other)
  Sender: FDA-Public Use
  Company Number: FR-ELI_LILLY_AND_COMPANY-FR201101003106

PATIENT
  Age: 44 Year
  Sex: Male
  Weight: 65 kg

DRUGS (2)
  1. RIVOTRIL [Concomitant]
     Indication: PAIN
     Dosage: 2 MG, QD
     Route: 048
  2. ZYPADHERA [Suspect]
     Indication: SCHIZOPHRENIA
     Dosage: 300MG EVERY TWO WEEKS
     Route: 030
     Dates: start: 20101018

REACTIONS (8)
  - DYSARTHRIA [None]
  - EXTRAPYRAMIDAL DISORDER [None]
  - OVERDOSE [None]
  - CONFUSIONAL STATE [None]
  - DISTURBANCE IN ATTENTION [None]
  - SEDATION [None]
  - FATIGUE [None]
  - BLOOD PRESSURE ABNORMAL [None]
